FAERS Safety Report 4646024-0 (Version None)
Quarter: 2005Q2

REPORT INFORMATION
  Report Type: 
  Country: None (occurrence: None)
  Receive Date: 20050425
  Receipt Date: 20050419
  Transmission Date: 20051028
  Serious: Yes (Other)
  Sender: FDA-Public Use
  Company Number: 2005061315

PATIENT
  Age: 58 Year
  Sex: Female

DRUGS (2)
  1. BEXTRA [Suspect]
     Indication: OSTEOARTHRITIS
     Dosage: 20 MG ( 1 IN 1 D), ORAL
     Route: 048
     Dates: start: 20050303, end: 20050313
  2. HYZAAR [Concomitant]

REACTIONS (1)
  - RASH MACULO-PAPULAR [None]
